FAERS Safety Report 4955743-8 (Version None)
Quarter: 2006Q1

REPORT INFORMATION
  Report Type: 
  Country: None (occurrence: None)
  Receive Date: 20060328
  Receipt Date: 20060316
  Transmission Date: 20060701
  Serious: Yes (Hospitalization)
  Sender: FDA-Public Use
  Company Number: AU-ROCHE-440748

PATIENT
  Age: 50 Year
  Sex: Female

DRUGS (2)
  1. CELLCEPT [Suspect]
     Indication: DRUG USE FOR UNKNOWN INDICATION
     Route: 065
  2. RAPTIVA [Suspect]
     Indication: PSORIASIS
     Dosage: - ONE DOSE UNSPECIFIED. - FORM REPORTED AS POWDER FOR INJECTION WEEKLY.
     Route: 058
     Dates: start: 20050715, end: 20051007

REACTIONS (1)
  - PUSTULAR PSORIASIS [None]
